FAERS Safety Report 6892384-X (Version None)
Quarter: 2010Q3

REPORT INFORMATION
  Report Type: 
  Country: None (occurrence: None)
  Receive Date: 20100731
  Receipt Date: 20080512
  Transmission Date: 20110219
  Serious: Yes (Other)
  Sender: FDA-Public Use
  Company Number: US-PFIZER INC-2008028342

PATIENT
  Sex: Male
  Weight: 180 kg

DRUGS (3)
  1. CAVERJECT [Suspect]
     Indication: PROSTATE CANCER
  2. CAVERJECT [Suspect]
     Indication: SURGERY
  3. LIPITOR [Concomitant]

REACTIONS (2)
  - ERECTION INCREASED [None]
  - PAINFUL ERECTION [None]
